FAERS Safety Report 5140133-8 (Version None)
Quarter: 2006Q4

REPORT INFORMATION
  Report Type: 
  Country: None (occurrence: None)
  Receive Date: 20061024
  Receipt Date: 20061005
  Transmission Date: 20070319
  Serious: Yes (Hospitalization)
  Sender: FDA-Public Use
  Company Number: US200609001137

PATIENT
  Age: 42 Year
  Sex: Female
  Weight: 91.6 kg

DRUGS (5)
  1. ZYPREXA [Suspect]
     Dosage: 5 MG,
     Dates: start: 19970101, end: 20030101
  2. QUETIAPINE FUMARATE [Concomitant]
  3. ZIPRASIDONE HCL [Concomitant]
  4. THIOTHIXENE [Concomitant]
  5. DIVALPROEX SODIUM [Concomitant]

REACTIONS (5)
  - BLOOD CHOLESTEROL ABNORMAL [None]
  - DIABETES MELLITUS [None]
  - DIABETIC COMPLICATION [None]
  - OBESITY [None]
  - STAPHYLOCOCCAL INFECTION [None]
